FAERS Safety Report 9259602 (Version 2)
Quarter: 2013Q4

REPORT INFORMATION
  Report Type: Spontaneous
  Country: US (occurrence: US)
  Receive Date: 20130429
  Receipt Date: 20131227
  Transmission Date: 20140711
  Serious: Yes (Other)
  Sender: FDA-Public Use
  Company Number: US-ASTRAZENECA-2013SE27632

PATIENT
  Age: 65 Year
  Sex: Female
  Weight: 61.2 kg

DRUGS (18)
  1. OMEPRAZOLE [Suspect]
     Indication: NAUSEA
     Route: 048
  2. OMEPRAZOLE [Suspect]
     Indication: VOMITING
     Route: 048
  3. PREVACID [Concomitant]
     Dates: start: 1998
  4. TUMS [Concomitant]
     Indication: GASTROOESOPHAGEAL REFLUX DISEASE
     Dosage: ONLY 2 FOR THE TWO DAYS OVER THE COUNTER AS NEEDED
     Dates: start: 1998
  5. ARAVA [Concomitant]
  6. CRESTOR [Concomitant]
  7. COREG [Concomitant]
  8. HYZAAR [Concomitant]
     Dosage: 50-12.5 DAILY
  9. LUNESTA [Concomitant]
  10. OXYCONTIN [Concomitant]
  11. LOPERAMIDE [Concomitant]
     Dosage: 2 MG 4 TIMES AS NEEDED
  12. PREDNISONE [Concomitant]
     Dosage: 5 MG
  13. NAPROXEN [Concomitant]
     Dates: start: 20060128
  14. AVELOX [Concomitant]
  15. NEXIUM [Suspect]
     Indication: GASTRIC DISORDER
     Route: 048
     Dates: start: 1990, end: 2010
  16. NEXIUM [Suspect]
     Indication: DYSPEPSIA
     Route: 048
     Dates: start: 1990, end: 2010
  17. NEXIUM [Suspect]
     Indication: GASTRIC DISORDER
     Route: 048
     Dates: start: 20060118
  18. NEXIUM [Suspect]
     Indication: DYSPEPSIA
     Route: 048
     Dates: start: 20060118

REACTIONS (11)
  - Femur fracture [Unknown]
  - Cataract [Unknown]
  - Osteoporosis [Unknown]
  - Bone disorder [Unknown]
  - Ankle fracture [Unknown]
  - Arthritis [Unknown]
  - Chronic obstructive pulmonary disease [Unknown]
  - Fall [Unknown]
  - Rheumatoid arthritis [Unknown]
  - Vitamin D deficiency [Unknown]
  - Depression [Unknown]
